FAERS Safety Report 8867271 (Version 1)
Quarter: 2012Q4

REPORT INFORMATION
  Report Type: 
  Country: US (occurrence: US)
  Receive Date: 20121025
  Receipt Date: 20121025
  Transmission Date: 20130627
  Serious: No
  Sender: FDA-Public Use
  Company Number: US-AMGEN-USASP2012015563

PATIENT
  Age: 39 Year
  Sex: Female
  Weight: 74.38 kg

DRUGS (2)
  1. ENBREL [Suspect]
     Indication: RHEUMATOID ARTHRITIS
     Dosage: 50 mg, qwk
     Route: 058
     Dates: start: 20091209, end: 20120209
  2. SIMPONI [Concomitant]
     Dosage: UNK

REACTIONS (2)
  - Injection site reaction [Unknown]
  - Injection site pain [Unknown]
